FAERS Safety Report 5662322-6 (Version None)
Quarter: 2008Q1

REPORT INFORMATION
  Report Type: 
  Country: None (occurrence: None)
  Receive Date: 20080312
  Receipt Date: 20080229
  Transmission Date: 20080703
  Serious: Yes (Hospitalization)
  Sender: FDA-Public Use
  Company Number: FR-PFIZER INC-2008019826

PATIENT
  Sex: Male

DRUGS (6)
  1. PREDNISONE [Suspect]
     Indication: MULTIPLE MYELOMA
     Route: 048
  2. NIFEDIPINE [Suspect]
     Route: 048
  3. ALDACTAZIDE [Suspect]
     Dosage: TEXT:0.5 DOSE FORM
     Route: 048
  4. THALIDOMIDE [Suspect]
     Indication: MULTIPLE MYELOMA
     Dosage: DAILY DOSE:100MG
     Route: 048
  5. ZOLTUM [Suspect]
     Route: 048
  6. ALKERAN [Suspect]
     Indication: MULTIPLE MYELOMA
     Route: 048

REACTIONS (2)
  - CHILLS [None]
  - PSORIASIS [None]
